FAERS Safety Report 22253357 (Version 1)
Quarter: 2023Q2

REPORT INFORMATION
  Report Type: Spontaneous
  Country: GB (occurrence: GB)
  Receive Date: 20230426
  Receipt Date: 20230426
  Transmission Date: 20230721
  Serious: Yes (Other)
  Sender: FDA-Public Use
  Company Number: GB-AMGEN-GBRSP2023068932

PATIENT
  Sex: Male

DRUGS (1)
  1. ARANESP [Suspect]
     Active Substance: DARBEPOETIN ALFA
     Indication: Haemoglobin decreased
     Dosage: 20 MICROGRAM PER 0.5 MILLILITRE, Q2WK
     Route: 058
     Dates: start: 20230417

REACTIONS (7)
  - Dementia Alzheimer^s type [Unknown]
  - Headache [Unknown]
  - Hypertension [Unknown]
  - Vision blurred [Unknown]
  - Tremor [Unknown]
  - Feeling cold [Unknown]
  - Urinary tract infection [Unknown]
